FAERS Safety Report 9509871 (Version 1)
Quarter: 2013Q3

REPORT INFORMATION
  Report Type: Spontaneous
  Country: DE (occurrence: DE)
  Receive Date: 20130909
  Receipt Date: 20130909
  Transmission Date: 20140515
  Serious: Yes (Other)
  Sender: FDA-Public Use
  Company Number: GXKR2013DE002956

PATIENT
  Sex: 0

DRUGS (4)
  1. PARACETAMOL [Suspect]
     Dosage: MATERNAL DOSE: 4 [G/D ]
     Route: 063
  2. THEOPHYLLINE [Suspect]
     Dosage: MATERNAL DOSE: 125 [MG/D ]
     Route: 063
  3. IBUPROFEN [Suspect]
     Dosage: MATERNAL DOSE: 2400 [MG/D ]
     Route: 063
  4. CIPROFLOXACIN [Suspect]
     Route: 063

REACTIONS (1)
  - Hepatobiliary disease [Unknown]
